FAERS Safety Report 8686591 (Version 2)
Quarter: 2013Q4

REPORT INFORMATION
  Report Type: Spontaneous
  Country: US (occurrence: US)
  Receive Date: 20120726
  Receipt Date: 20131101
  Transmission Date: 20140711
  Serious: No
  Sender: FDA-Public Use
  Company Number: US-009507513-1207USA007573

PATIENT
  Sex: Male
  Weight: 77.98 kg

DRUGS (9)
  1. PEG-INTRON [Suspect]
     Dosage: 150 MICROGRAM, QW
     Route: 058
  2. REBETOL [Suspect]
  3. PRAVASTATIN SODIUM [Concomitant]
  4. OMEPRAZOLE [Concomitant]
  5. TOPROL XL TABLETS [Concomitant]
  6. ASPIRIN [Concomitant]
  7. MILK THISTLE [Concomitant]
  8. PROCRIT [Concomitant]
  9. VITAMINS (UNSPECIFIED) [Concomitant]

REACTIONS (5)
  - Anaemia [Unknown]
  - Pain [Unknown]
  - Nausea [Unknown]
  - Decreased appetite [Unknown]
  - Fatigue [Unknown]
